FAERS Safety Report 9094868 (Version 2)
Quarter: 2014Q2

REPORT INFORMATION
  Report Type: Spontaneous
  Country: US (occurrence: US)
  Receive Date: 20130220
  Receipt Date: 20140501
  Transmission Date: 20141212
  Serious: No
  Sender: FDA-Public Use
  Company Number: US-BIOGENIDEC-2013BI014711

PATIENT
  Age: 50 Year
  Sex: Female

DRUGS (1)
  1. TYSABRI [Suspect]
     Indication: MULTIPLE SCLEROSIS
     Route: 042
     Dates: start: 20070205

REACTIONS (9)
  - Cognitive disorder [Unknown]
  - Balance disorder [Unknown]
  - Dysphagia [Unknown]
  - Hypoaesthesia [Unknown]
  - Fall [Recovered/Resolved]
  - Fungal infection [Unknown]
  - Oral fungal infection [Unknown]
  - Memory impairment [Unknown]
  - Fatigue [Not Recovered/Not Resolved]
